FAERS Safety Report 16451769 (Version 1)
Quarter: 2019Q2

REPORT INFORMATION
  Report Type: Spontaneous
  Country: CN (occurrence: CN)
  Receive Date: 20190619
  Receipt Date: 20190619
  Transmission Date: 20190711
  Serious: Yes (Life-Threatening)
  Sender: FDA-Public Use
  Company Number: CN-ROCHE-2339998

PATIENT
  Age: 56 Year
  Sex: Male
  Weight: 65 kg

DRUGS (1)
  1. ACTILYSE [Suspect]
     Active Substance: ALTEPLASE
     Indication: CEREBRAL INFARCTION
     Dosage: DOSAGE FORM-INJECTION (7 MG,1 IN 1 D)
     Route: 040
     Dates: start: 20190602, end: 20190602

REACTIONS (13)
  - Brain stem haemorrhage [Recovering/Resolving]
  - Depressed level of consciousness [Recovering/Resolving]
  - Pupillary light reflex tests abnormal [Recovering/Resolving]
  - Hypoaesthesia [Recovering/Resolving]
  - Muscular weakness [Recovering/Resolving]
  - Eye disorder [Recovering/Resolving]
  - Tremor [Recovering/Resolving]
  - Cyanosis [Recovering/Resolving]
  - Muscle tightness [Recovering/Resolving]
  - Dyspnoea [Recovering/Resolving]
  - Muscle rigidity [Recovering/Resolving]
  - Headache [Recovering/Resolving]
  - Tinnitus [Recovering/Resolving]

NARRATIVE: CASE EVENT DATE: 20190602
